FAERS Safety Report 4873343-5 (Version None)
Quarter: 2006Q1

REPORT INFORMATION
  Report Type: 
  Country: None (occurrence: None)
  Receive Date: 20060104
  Receipt Date: 20051228
  Transmission Date: 20060701
  Serious: Yes (Hospitalization)
  Sender: FDA-Public Use
  Company Number: TCI2005A05227

PATIENT
  Age: 68 Year
  Sex: Male

DRUGS (19)
  1. ACTOS [Suspect]
     Indication: DIABETES MELLITUS NON-INSULIN-DEPENDENT
     Dosage: 15 MG (15 MG, 1 D) PER ORAL
     Route: 048
     Dates: start: 20050720, end: 20051224
  2. ACTOS [Suspect]
     Indication: DIABETES MELLITUS NON-INSULIN-DEPENDENT
     Dosage: 15 MG (15 MG, 1 D) PER ORAL
     Route: 048
     Dates: start: 20051225, end: 20051225
  3. ACTOS [Suspect]
     Indication: DIABETES MELLITUS NON-INSULIN-DEPENDENT
     Dosage: 15 MG (15 MG, 1 D) PER ORAL
     Route: 048
     Dates: start: 20051226
  4. NATEGLINIDE [Suspect]
     Indication: DIABETES MELLITUS NON-INSULIN-DEPENDENT
     Dosage: PER ORAL
     Route: 048
     Dates: start: 20050817, end: 20051224
  5. NATEGLINIDE [Suspect]
     Indication: DIABETES MELLITUS NON-INSULIN-DEPENDENT
     Dosage: PER ORAL
     Route: 048
     Dates: start: 20051225, end: 20051225
  6. NATEGLINIDE [Suspect]
     Indication: DIABETES MELLITUS NON-INSULIN-DEPENDENT
     Dosage: PER ORAL
     Route: 048
     Dates: start: 20051226
  7. BLOPRESS (CANDESARTAN CILEXETIL) [Concomitant]
  8. ADALAT [Concomitant]
  9. GASCON (DIMETICONE) [Concomitant]
  10. SELBEX (TEPRENONE) [Concomitant]
  11. SIGMART (NICORANDIL) [Concomitant]
  12. FAMOTIDINE [Concomitant]
  13. NELBON (NITRAZEPAM) [Concomitant]
  14. SYAKUYAKUAKNZOTO (SYAKUYAKUAKNZOTO) [Concomitant]
  15. TUOKAKUJOUKITOU (TUOKAKUJOUKITOU) [Concomitant]
  16. SELTOUCH (FELBINAC) [Concomitant]
  17. LIPLE (ALPROSTADIL) [Concomitant]
  18. NEUROTROPIN (ORGAN LYSATE, STANDARDIZED) [Concomitant]
  19. XYLOCAINE [Concomitant]

REACTIONS (7)
  - BLOOD CREATINE PHOSPHOKINASE INCREASED [None]
  - BLOOD PRESSURE DIASTOLIC DECREASED [None]
  - DRUG DOSE OMISSION [None]
  - HAEMATOCRIT DECREASED [None]
  - HYPERTHERMIA [None]
  - PLATELET COUNT DECREASED [None]
  - PNEUMONIA BACTERIAL [None]
